FAERS Safety Report 5682450-9 (Version None)
Quarter: 2008Q1

REPORT INFORMATION
  Report Type: 
  Country: None (occurrence: None)
  Receive Date: 20080326
  Receipt Date: 20080326
  Transmission Date: 20080703
  Serious: Yes (Life-Threatening)
  Sender: FDA-Public Use
  Company Number: None

PATIENT
  Age: 54 Year
  Sex: Female
  Weight: 79.3795 kg

DRUGS (2)
  1. ARAVA [Suspect]
     Indication: PSORIATIC ARTHROPATHY
     Dosage: 20 MG DAILY PO
     Route: 048
     Dates: start: 20060207, end: 20080225
  2. REMICADE [Suspect]
     Indication: PSORIASIS
     Dosage: 300 MG EVERY 8 WEEKS IV DRIP
     Route: 041
     Dates: start: 20071128, end: 20080107

REACTIONS (2)
  - COMA HEPATIC [None]
  - HEPATIC FAILURE [None]
